FAERS Safety Report 12100481 (Version 1)
Quarter: 2016Q1

REPORT INFORMATION
  Report Type: Spontaneous
  Country: US (occurrence: None)
  Receive Date: 20160219
  Receipt Date: 20160219
  Transmission Date: 20160526
  Serious: No
  Sender: FDA-Public Use
  Company Number: None

PATIENT
  Sex: Female

DRUGS (2)
  1. HUMIRA [Suspect]
     Active Substance: ADALIMUMAB
     Indication: COLITIS
     Dosage: 40 MG SQ EVERY OTHER WEEK
     Route: 058
     Dates: start: 20151214
  2. HUMIRA [Suspect]
     Active Substance: ADALIMUMAB
     Indication: COLITIS ULCERATIVE
     Dosage: 40 MG SQ EVERY OTHER WEEK
     Route: 058
     Dates: start: 20151214

REACTIONS (5)
  - Injection site reaction [None]
  - Feeling hot [None]
  - Pruritus [None]
  - Rash [None]
  - Erythema [None]
